FAERS Safety Report 6491629-8 (Version None)
Quarter: 2009Q4

REPORT INFORMATION
  Report Type: 
  Country: None (occurrence: None)
  Receive Date: 20091207
  Receipt Date: 20091123
  Transmission Date: 20100525
  Serious: Yes (Hospitalization)
  Sender: FDA-Public Use
  Company Number: 007544

PATIENT
  Age: 79 Year
  Sex: Female
  Weight: 70 kg

DRUGS (4)
  1. PLETAL [Suspect]
     Indication: PERIPHERAL ARTERIAL OCCLUSIVE DISEASE
     Dosage: 100 MG, QD, ORAL
     Route: 048
     Dates: start: 20070816, end: 20090810
  2. PREGABALIN [Suspect]
     Indication: POLYNEUROPATHY
     Dosage: 75 DF, QD, ORAL
     Route: 048
     Dates: start: 20070701, end: 20090810
  3. TILIDIN COMP         (NALOXONE HYDROCHLORIDE, TILIDINE HYDROCHLORIDE) [Concomitant]
  4. TIOTROPIUM BROMIDE (TIOTROPIUM BROMIDE) [Concomitant]

REACTIONS (4)
  - AMNESIA [None]
  - CONTUSION [None]
  - SKIN LACERATION [None]
  - SYNCOPE [None]
